FAERS Safety Report 6357126-5 (Version None)
Quarter: 2009Q3

REPORT INFORMATION
  Report Type: 
  Country: None (occurrence: None)
  Receive Date: 20090910
  Receipt Date: 20090824
  Transmission Date: 20100115
  Serious: Yes (Other)
  Sender: FDA-Public Use
  Company Number: 1-19618531

PATIENT
  Age: 10 Year
  Sex: Female

DRUGS (1)
  1. AMPHETAMINE SALTS TABLETS (MANUFACTURER UNKNOWN) [Suspect]
     Indication: ATTENTION DEFICIT/HYPERACTIVITY DISORDER
     Dosage: 30 MG DAILY, ORAL
     Route: 048

REACTIONS (9)
  - ANTINUCLEAR ANTIBODY POSITIVE [None]
  - CHILLBLAINS [None]
  - CONTUSION [None]
  - CUTANEOUS SARCOIDOSIS [None]
  - CYANOSIS [None]
  - ERYTHEMA [None]
  - PAIN IN EXTREMITY [None]
  - PRURITUS [None]
  - VASCULITIS NECROTISING [None]
